FAERS Safety Report 10234855 (Version 1)
Quarter: 2014Q2

REPORT INFORMATION
  Report Type: Spontaneous
  Country: US (occurrence: None)
  Receive Date: 20140516
  Receipt Date: 20140516
  Transmission Date: 20141212
  Serious: No
  Sender: FDA-Public Use
  Company Number: E2007-01627-SPO-US

PATIENT
  Age: 32 Year
  Sex: Female

DRUGS (2)
  1. FYCOMPA (PERAMPANEL) [Suspect]
     Indication: PARTIAL SEIZURES
     Route: 048
     Dates: start: 2014, end: 2014
  2. ANTIEPILEPTICS (ANTIEPILEPTICS) [Concomitant]

REACTIONS (2)
  - Weight decreased [None]
  - Headache [None]
